FAERS Safety Report 5354963-0 (Version None)
Quarter: 2007Q2

REPORT INFORMATION
  Report Type: 
  Country: None (occurrence: None)
  Receive Date: 20070521
  Receipt Date: 20070326
  Transmission Date: 20071010
  Serious: No
  Sender: FDA-Public Use
  Company Number: WAES 0703USA04931

PATIENT
  Age: 60 Year
  Sex: Male

DRUGS (6)
  1. JANUVIA [Suspect]
     Indication: DIABETES MELLITUS NON-INSULIN-DEPENDENT
     Dosage: 100 MG/DAILY/PO
     Route: 048
     Dates: start: 20070305, end: 20070320
  2. COREG [Concomitant]
  3. COUMADIN [Concomitant]
  4. LASIX [Concomitant]
  5. PLAVIX [Concomitant]
  6. LISINOPRIL [Concomitant]

REACTIONS (1)
  - PRURITUS [None]
